FAERS Safety Report 10900402 (Version 1)
Quarter: 2015Q1

REPORT INFORMATION
  Report Type: Spontaneous
  Country: US (occurrence: None)
  Receive Date: 20150303
  Receipt Date: 20150303
  Transmission Date: 20150721
  Serious: Yes (Hospitalization)
  Sender: FDA-Public Use
  Company Number: None

PATIENT
  Age: 74 Year
  Sex: Male

DRUGS (1)
  1. POTASSIUM CHLORIDE. [Suspect]
     Active Substance: POTASSIUM CHLORIDE
     Indication: ELECTROLYTE SUBSTITUTION THERAPY
     Route: 048
     Dates: start: 20141126, end: 20141206

REACTIONS (5)
  - Vomiting [None]
  - Abdominal pain [None]
  - Decreased appetite [None]
  - Oesophagitis [None]
  - Nausea [None]

NARRATIVE: CASE EVENT DATE: 20141209
